FAERS Safety Report 21584357 (Version 2)
Quarter: 2022Q4

REPORT INFORMATION
  Report Type: Report from Study
  Country: US (occurrence: None)
  Receive Date: 20221111
  Receipt Date: 20221212
  Transmission Date: 20230113
  Serious: Yes (Hospitalization)
  Sender: FDA-Public Use
  Company Number: US-Eisai Medical Research-EC-2022-126125

PATIENT
  Age: 74 Year
  Sex: Female

DRUGS (2)
  1. LENVIMA [Suspect]
     Active Substance: LENVATINIB
     Indication: Uterine cancer
     Route: 048
     Dates: start: 20221006, end: 202210
  2. KEYTRUDA [Concomitant]
     Active Substance: PEMBROLIZUMAB
     Indication: Uterine cancer
     Dosage: DOSE AND FREQUENCY UNKNOWN

REACTIONS (9)
  - Blood pressure increased [Recovering/Resolving]
  - Arthralgia [Unknown]
  - Abdominal pain upper [Not Recovered/Not Resolved]
  - Headache [Not Recovered/Not Resolved]
  - Diarrhoea [Unknown]
  - Chills [Unknown]
  - Hiccups [Unknown]
  - Nausea [Unknown]
  - Back pain [Unknown]

NARRATIVE: CASE EVENT DATE: 20221001
